FAERS Safety Report 15412636 (Version 3)
Quarter: 2019Q1

REPORT INFORMATION
  Report Type: Spontaneous
  Country: US (occurrence: US)
  Receive Date: 20180921
  Receipt Date: 20190108
  Transmission Date: 20190417
  Serious: No
  Sender: FDA-Public Use
  Company Number: US-BRISTOL-MYERS SQUIBB COMPANY-BMS-2018-088117

PATIENT
  Sex: Female
  Weight: 114.29 kg

DRUGS (2)
  1. ZOCOR [Concomitant]
     Active Substance: SIMVASTATIN
     Indication: PRODUCT USED FOR UNKNOWN INDICATION
     Dosage: UNK
     Route: 065
  2. ORENCIA [Suspect]
     Active Substance: ABATACEPT
     Indication: PSORIATIC ARTHROPATHY
     Dosage: 125 MG, UNK
     Route: 058
     Dates: start: 201808

REACTIONS (6)
  - Flushing [Unknown]
  - Burning sensation [Unknown]
  - Bone pain [Unknown]
  - Condition aggravated [Unknown]
  - Urticaria [Unknown]
  - Arthralgia [Unknown]
